FAERS Safety Report 7637825-5 (Version None)
Quarter: 2011Q3

REPORT INFORMATION
  Report Type: 
  Country: None (occurrence: None)
  Receive Date: 20110720
  Receipt Date: 20110707
  Transmission Date: 20111222
  Serious: Yes (Hospitalization)
  Sender: FDA-Public Use
  Company Number: CIP11000561

PATIENT
  Age: 78 Year
  Sex: Female

DRUGS (16)
  1. ACTONEL [Suspect]
     Indication: OSTEOPOROSIS
     Dosage: 35 MG ONCE WEEKLY, ORAL
     Route: 048
     Dates: start: 20021210, end: 20060101
  2. TOPROL-XL [Concomitant]
  3. ZITHROMAX [Concomitant]
  4. MULTIVITAMIN /00097801/ 9ASCORBIC ACID, CALCIUM PANTOTHENOLATE, ERGOCA [Concomitant]
  5. FOSAMAX [Suspect]
     Indication: OSTEOPOROSIS
     Dosage: 70 MG WEEKLY, ORAL
     Route: 048
     Dates: start: 20001207, end: 20021210
  6. FOSAMAX PLUS D [Suspect]
     Indication: OSTEOPOROSIS
     Dosage: 70 MG, ORAL, 10 MG DAILY ORAL
     Route: 048
     Dates: start: 19950101, end: 20001207
  7. FOSAMAX PLUS D [Suspect]
     Indication: OSTEOPOROSIS
     Dosage: 70 MG, ORAL, 10 MG DAILY ORAL
     Route: 048
     Dates: start: 20070316, end: 20080411
  8. AMOXICILLIN [Concomitant]
  9. ALENDRONATE (ALENDRONATE SODIUNM) [Suspect]
     Indication: OSTEOPOROSIS
     Dosage: 70 MG WEEKLY, ORAL
     Route: 048
     Dates: start: 20080502, end: 20090831
  10. PATANOL (OLPATADINE HYDROCHLORIDE) [Concomitant]
  11. HYDROCODONE BITARTRATE AND ACETAMINOPHEN (HYDROCODONE BITARTRATE, PARA [Concomitant]
  12. LEVOXYL [Concomitant]
  13. METHOCARBAMOL [Concomitant]
  14. ACTONEL [Suspect]
     Indication: OSTEOPOROSIS
     Dosage: 150 MG, 1/MONTH,ORAL
     Route: 048
     Dates: start: 20100507
  15. RHINOCORT [Concomitant]
  16. CITRACAL (CALCIUM CITRATE) [Concomitant]

REACTIONS (22)
  - CONTUSION [None]
  - ATELECTASIS [None]
  - GAIT DISTURBANCE [None]
  - ULNA FRACTURE [None]
  - OBSTRUCTIVE AIRWAYS DISORDER [None]
  - OSTEOPOROSIS [None]
  - DRUG INEFFECTIVE [None]
  - LUNG HYPERINFLATION [None]
  - POST PROCEDURAL PULMONARY EMBOLISM [None]
  - FRACTURE DISPLACEMENT [None]
  - HUMERUS FRACTURE [None]
  - COMMINUTED FRACTURE [None]
  - PLEURAL EFFUSION [None]
  - PAIN [None]
  - FEMUR FRACTURE [None]
  - STRESS FRACTURE [None]
  - FALL [None]
  - RADIUS FRACTURE [None]
  - PAIN IN EXTREMITY [None]
  - DYSPNOEA [None]
  - WOUND SECRETION [None]
  - CONDITION AGGRAVATED [None]
